FAERS Safety Report 21263410 (Version 1)
Quarter: 2022Q3

REPORT INFORMATION
  Report Type: Spontaneous
  Country: IT (occurrence: IT)
  Receive Date: 20220829
  Receipt Date: 20220829
  Transmission Date: 20221026
  Serious: Yes (Other)
  Sender: FDA-Public Use
  Company Number: IT-UCBSA-2020044075

PATIENT
  Age: 76 Year
  Sex: Female
  Weight: 67 kg

DRUGS (4)
  1. LACOSAMIDE [Suspect]
     Active Substance: LACOSAMIDE
     Indication: Epilepsy
     Dosage: 150 MILLIGRAM, ONCE A DAY(75 MILLIGRAM (50MG 1 AND HALF TABLET), 2X/DAY (BID))
     Route: 065
     Dates: start: 2020
  2. RISPERIDONE [Suspect]
     Active Substance: RISPERIDONE
     Indication: Product used for unknown indication
     Dosage: UNK
     Route: 065
  3. LEVETIRACETAM [Concomitant]
     Active Substance: LEVETIRACETAM
     Indication: Epilepsy
     Dosage: UNK
     Route: 065
  4. ITALEPT [Concomitant]
     Indication: Product used for unknown indication
     Dosage: UNK
     Route: 065

REACTIONS (11)
  - Cognitive disorder [Unknown]
  - Dementia Alzheimer^s type [Unknown]
  - Parkinson^s disease [Unknown]
  - Epilepsy [Unknown]
  - General physical health deterioration [Unknown]
  - Fatigue [Unknown]
  - Dysphagia [Recovered/Resolved]
  - Insomnia [Unknown]
  - Loss of personal independence in daily activities [Unknown]
  - Wrong technique in product usage process [Unknown]
  - Somnolence [Unknown]

NARRATIVE: CASE EVENT DATE: 20200101
